FAERS Safety Report 15210176 (Version 2)
Quarter: 2021Q4

REPORT INFORMATION
  Report Type: Report from Study
  Country: US (occurrence: US)
  Receive Date: 20180727
  Receipt Date: 20211214
  Transmission Date: 20220303
  Serious: No
  Sender: FDA-Public Use
  Company Number: US-009507513-1807USA008618

PATIENT
  Sex: Female

DRUGS (16)
  1. PROVENTIL [Suspect]
     Active Substance: ALBUTEROL
     Indication: Asthma
     Dosage: 3 PUFFS BY MOUTH 4 TIMES DAILY AS NEEDED BUT USE 2 PUFFS EVERY 4 HR ATC
     Route: 055
     Dates: start: 2001
  2. PROVENTIL [Suspect]
     Active Substance: ALBUTEROL
     Indication: Chronic obstructive pulmonary disease
     Dosage: 3 PUFFS BY MOUTH 4 TIMES DAILY AS NEEDED BUT USE 2 PUFFS EVERY 4 HR ATC
     Route: 055
  3. PROVENTIL [Suspect]
     Active Substance: ALBUTEROL
     Indication: Emphysema
  4. PROAIR HFA [Suspect]
     Active Substance: ALBUTEROL SULFATE
     Indication: Pulmonary haemosiderosis
     Dosage: UNK
     Dates: start: 200111
  5. PROAIR HFA [Suspect]
     Active Substance: ALBUTEROL SULFATE
     Indication: Chronic obstructive pulmonary disease
  6. PROAIR HFA [Suspect]
     Active Substance: ALBUTEROL SULFATE
     Indication: Asthma
  7. VENTOLIN [Suspect]
     Active Substance: ALBUTEROL SULFATE
  8. CROMOGLICATE SODIUM;SALBUTAMOL [Concomitant]
     Dosage: ONCE
  9. BUDESONIDE;SALBUTAMOL SULFATE [Concomitant]
     Dosage: ONCE
  10. SYNTHROID [Concomitant]
     Active Substance: LEVOTHYROXINE SODIUM
  11. CARBIDOPA AND LEVODOPA [Concomitant]
     Active Substance: CARBIDOPA\LEVODOPA
  12. DICYCLOMINE HYDROCHLORIDE [Concomitant]
     Active Substance: DICYCLOMINE HYDROCHLORIDE
  13. ELAVIL [Concomitant]
     Active Substance: AMITRIPTYLINE HYDROCHLORIDE
  14. GLIMEPIRIDE [Concomitant]
     Active Substance: GLIMEPIRIDE
  15. VITAMINS [Concomitant]
     Active Substance: VITAMINS
  16. BENADRYL [Concomitant]
     Active Substance: DIPHENHYDRAMINE HYDROCHLORIDE
     Dosage: 25 MG EVERY NIGHT

REACTIONS (11)
  - Oropharyngeal discomfort [Not Recovered/Not Resolved]
  - Oxygen therapy [Recovered/Resolved]
  - Fall [Not Recovered/Not Resolved]
  - Drug ineffective for unapproved indication [Not Recovered/Not Resolved]
  - Inappropriate schedule of product administration [Unknown]
  - Incorrect dose administered [Unknown]
  - Drug ineffective [Unknown]
  - Product quality issue [Unknown]
  - Intentional product use issue [Unknown]
  - Product dose omission issue [Unknown]
  - Circumstance or information capable of leading to medication error [Unknown]

NARRATIVE: CASE EVENT DATE: 20020101
